FAERS Safety Report 15148982 (Version 1)
Quarter: 2018Q3

REPORT INFORMATION
  Report Type: Spontaneous
  Country: JP (occurrence: JP)
  Receive Date: 20180716
  Receipt Date: 20180716
  Transmission Date: 20181010
  Serious: Yes (Other)
  Sender: FDA-Public Use
  Company Number: JP-PFIZER INC-2018276790

PATIENT

DRUGS (1)
  1. NASANYL 0.2% [Suspect]
     Active Substance: NAFARELIN ACETATE
     Dosage: UNK

REACTIONS (2)
  - Polyp [Unknown]
  - Intestinal haemorrhage [Unknown]
